FAERS Safety Report 4417958-7 (Version None)
Quarter: 2004Q3

REPORT INFORMATION
  Report Type: 
  Country: None (occurrence: None)
  Receive Date: 20040803
  Receipt Date: 20040726
  Transmission Date: 20050211
  Serious: Yes (Life-Threatening)
  Sender: FDA-Public Use
  Company Number: 2004CG01473

PATIENT
  Sex: Male
  Weight: 2.6 kg

DRUGS (1)
  1. OMEPRAZOLE [Suspect]
     Indication: DYSPEPSIA
     Dosage: 1 DF QD TPL
     Route: 064
     Dates: start: 20040301, end: 20040329

REACTIONS (8)
  - AMNIOCENTESIS ABNORMAL [None]
  - APGAR SCORE LOW [None]
  - ASPHYXIA [None]
  - CAESAREAN SECTION [None]
  - DRUG EXPOSURE DURING PREGNANCY [None]
  - FOETAL DISTRESS SYNDROME [None]
  - FOETAL GROWTH RETARDATION [None]
  - NEONATAL RESPIRATORY ARREST [None]
